FAERS Safety Report 18583942 (Version 1)
Quarter: 2020Q4

REPORT INFORMATION
  Report Type: Spontaneous
  Country: AU (occurrence: AU)
  Receive Date: 20201207
  Receipt Date: 20201207
  Transmission Date: 20210114
  Serious: Yes (Other)
  Sender: FDA-Public Use
  Company Number: AU-ALKEM LABORATORIES LIMITED-AU-ALKEM-2020-03063

PATIENT
  Age: 64 Year
  Sex: Male

DRUGS (2)
  1. CLOZAPINE. [Suspect]
     Active Substance: CLOZAPINE
     Indication: PRODUCT USED FOR UNKNOWN INDICATION
     Dosage: UNK
     Route: 065
  2. OLANZAPINE. [Suspect]
     Active Substance: OLANZAPINE
     Indication: PRODUCT USED FOR UNKNOWN INDICATION
     Dosage: UNK
     Route: 065

REACTIONS (9)
  - White blood cell count decreased [Unknown]
  - Polydipsia [Unknown]
  - Neutropenia [Unknown]
  - Ill-defined disorder [Unknown]
  - Tardive dyskinesia [Unknown]
  - Pneumonia [Unknown]
  - Dysarthria [Unknown]
  - Condition aggravated [Unknown]
  - Repetitive speech [Unknown]
